FAERS Safety Report 4570477-X (Version None)
Quarter: 2005Q1

REPORT INFORMATION
  Report Type: 
  Country: None (occurrence: None)
  Receive Date: 20050203
  Receipt Date: 20050203
  Transmission Date: 20050727
  Serious: Yes (Hospitalization)
  Sender: FDA-Public Use
  Company Number: None

PATIENT
  Age: 69 Year
  Sex: Female
  Weight: 38 kg

DRUGS (2)
  1. PACLITAXEL [Suspect]
     Indication: NON-SMALL CELL LUNG CANCER
     Dosage: 50MG/M2   INTRAVENOU
     Route: 042
     Dates: start: 20040920, end: 20041116
  2. CARBOPLATIN [Suspect]
     Indication: NON-SMALL CELL LUNG CANCER
     Dosage: AUC 2   INTRAVENOU
     Route: 042
     Dates: start: 20040920, end: 20041116

REACTIONS (2)
  - PNEUMOTHORAX [None]
  - PROCEDURAL COMPLICATION [None]
